FAERS Safety Report 8998683 (Version 1)
Quarter: 2013Q1

REPORT INFORMATION
  Report Type: Spontaneous
  Country: US (occurrence: US)
  Receive Date: 20130103
  Receipt Date: 20130103
  Transmission Date: 20140127
  Serious: No
  Sender: FDA-Public Use
  Company Number: US-PFIZER INC-2012324602

PATIENT
  Age: 52 Year
  Sex: Female

DRUGS (4)
  1. IRINOTECAN HCL [Suspect]
     Dosage: UNK
  2. CALCIUM FOLINATE [Suspect]
     Dosage: UNK
  3. FLUOROURACIL [Suspect]
     Dosage: UNK
  4. ZALTRAP [Suspect]
     Dosage: UNK

REACTIONS (3)
  - Abdominal pain upper [Unknown]
  - Diarrhoea [Unknown]
  - Lacrimation increased [Unknown]
